FAERS Safety Report 7149103-1 (Version None)
Quarter: 2010Q4

REPORT INFORMATION
  Report Type: 
  Country: None (occurrence: None)
  Receive Date: 20101124
  Receipt Date: 20101116
  Transmission Date: 20110411
  Serious: Yes (Death, Hospitalization)
  Sender: FDA-Public Use
  Company Number: DKLU1065040

PATIENT
  Age: 7 Month
  Sex: Male

DRUGS (11)
  1. SABRIL [Suspect]
     Indication: INFANTILE SPASMS
     Dosage: 500 MG MILLIGRAM(S), 2 IN 1 D, ORAL
     Route: 048
     Dates: start: 20100629, end: 20100907
  2. TOPAMAX [Concomitant]
  3. KEPPRA [Concomitant]
  4. DIAZEPAM [Concomitant]
  5. SIMETHICONE [Concomitant]
  6. CALMOSEPTINE (CALAMINE /01864001/)(OINTMENT) [Concomitant]
  7. ESOMEPRAZOLE [Concomitant]
  8. PEPCID [Concomitant]
  9. CLONAZEPAM [Concomitant]
  10. PHENOBARBITAL [Concomitant]
  11. ZONEGRAN [Concomitant]

REACTIONS (4)
  - CARDIAC ARREST [None]
  - CONDITION AGGRAVATED [None]
  - CONVULSION [None]
  - SEPSIS [None]
